FAERS Safety Report 8127142-1 (Version None)
Quarter: 2011Q4

REPORT INFORMATION
  Report Type: 
  Country: None (occurrence: None)
  Receive Date: 20111227
  Receipt Date: 20110908
  Transmission Date: 20120403
  Serious: No
  Sender: FDA-Public Use
  Company Number: PHHY2011US32824

PATIENT
  Age: 52 Year
  Sex: Female

DRUGS (1)
  1. GILENYA [Suspect]
     Indication: MULTIPLE SCLEROSIS RELAPSE
     Dosage: 0.5 MG, QD, ORAL
     Route: 048
     Dates: start: 20110330

REACTIONS (6)
  - FATIGUE [None]
  - TEMPERATURE INTOLERANCE [None]
  - INFLUENZA LIKE ILLNESS [None]
  - HEADACHE [None]
  - WEIGHT DECREASED [None]
  - MYALGIA [None]
